FAERS Safety Report 18295898 (Version 1)
Quarter: 2020Q3

REPORT INFORMATION
  Report Type: Spontaneous
  Country: TH (occurrence: TH)
  Receive Date: 20200922
  Receipt Date: 20200922
  Transmission Date: 20201103
  Serious: Yes (Other)
  Sender: FDA-Public Use
  Company Number: TH-ROCHE-2678764

PATIENT

DRUGS (1)
  1. HERCEPTIN [Suspect]
     Active Substance: TRASTUZUMAB
     Indication: PRODUCT USED FOR UNKNOWN INDICATION
     Route: 065

REACTIONS (5)
  - Interstitial lung disease [Unknown]
  - Pulmonary mass [Unknown]
  - Bronchiectasis [Unknown]
  - Lung consolidation [Unknown]
  - Atelectasis [Unknown]
